FAERS Safety Report 7907685-3 (Version None)
Quarter: 2011Q4

REPORT INFORMATION
  Report Type: 
  Country: None (occurrence: None)
  Receive Date: 20111110
  Receipt Date: 20111031
  Transmission Date: 20120403
  Serious: Yes (Hospitalization)
  Sender: FDA-Public Use
  Company Number: US-BAYER-2011-057080

PATIENT
  Age: 15 Year
  Sex: Female
  Weight: 47.982 kg

DRUGS (3)
  1. PROAIR HFA [Concomitant]
     Dosage: UNK
     Route: 055
     Dates: start: 20070101, end: 20090101
  2. ALBUTEROL [Concomitant]
     Dosage: UNK
     Route: 055
     Dates: start: 20070101, end: 20090101
  3. YAZ [Suspect]
     Indication: MENSTRUATION IRREGULAR
     Dosage: UNK
     Dates: start: 20090304, end: 20090501

REACTIONS (2)
  - PAIN [None]
  - DEEP VEIN THROMBOSIS [None]
